FAERS Safety Report 8458596-9 (Version None)
Quarter: 2012Q2

REPORT INFORMATION
  Report Type: 
  Country: None (occurrence: None)
  Receive Date: 20120622
  Receipt Date: 20120612
  Transmission Date: 20120825
  Serious: Yes (Other)
  Sender: FDA-Public Use
  Company Number: KR-SANOFI-AVENTIS-2012SA044564

PATIENT
  Sex: Female

DRUGS (3)
  1. BEVACIZUMAB [Suspect]
     Indication: BREAST CANCER
     Dosage: DOSE:  DAY 1 EVERY 21 DAYS FOR 5 CYCLES
     Route: 065
  2. CARBOPLATIN [Suspect]
     Indication: BREAST CANCER
     Dosage: DOSE: AREA UNDER CURVE 5, DAY 1EVERY 21 DAYS FOR 6 CYCLES,
     Route: 065
  3. DOCETAXEL [Suspect]
     Indication: BREAST CANCER
     Dosage: DOSE: DAY 1 EVERY 21 DAYS FOR 6 CYCLES
     Route: 065

REACTIONS (1)
  - IMPAIRED HEALING [None]
